FAERS Safety Report 25420179 (Version 3)
Quarter: 2025Q4

REPORT INFORMATION
  Report Type: Report from Study
  Country: JP (occurrence: JP)
  Receive Date: 20250610
  Receipt Date: 20251007
  Transmission Date: 20260118
  Serious: Yes (Other)
  Sender: BIOMARIN
  Company Number: JP-BIOMARINAP-JP-2025-166418

PATIENT
  Age: 38 Year
  Sex: Female

DRUGS (14)
  1. PALYNZIQ [Suspect]
     Active Substance: PEGVALIASE-PQPZ
     Indication: Phenylketonuria
     Dosage: 2.5 MILLIGRAM, QW
     Dates: start: 20240625
  2. FEXOFENADINE [Concomitant]
     Active Substance: FEXOFENADINE HYDROCHLORIDE
     Indication: Product used for unknown indication
     Dosage: 60 MILLIGRAM, PRN
     Dates: start: 20240625, end: 20240702
  3. FEXOFENADINE [Concomitant]
     Active Substance: FEXOFENADINE HYDROCHLORIDE
     Indication: Urticaria
     Dosage: 60 MILLIGRAM, PRN
     Dates: start: 20240703, end: 20240703
  4. FEXOFENADINE [Concomitant]
     Active Substance: FEXOFENADINE HYDROCHLORIDE
     Dosage: 60 MILLIGRAM, BID
     Dates: start: 20240705, end: 20240710
  5. FEXOFENADINE [Concomitant]
     Active Substance: FEXOFENADINE HYDROCHLORIDE
     Dosage: 60 MILLIGRAM, PRN
     Dates: start: 20240712, end: 20240724
  6. FEXOFENADINE [Concomitant]
     Active Substance: FEXOFENADINE HYDROCHLORIDE
     Dosage: UNK
  7. CALONAL [Concomitant]
     Active Substance: ACETAMINOPHEN
     Indication: Product used for unknown indication
     Dosage: 400 MILLIGRAM, PRN
  8. CALONAL [Concomitant]
     Active Substance: ACETAMINOPHEN
     Dosage: UNK
  9. PREDONINE [Concomitant]
     Active Substance: PREDNISOLONE
     Indication: Premedication
     Dosage: 30 MILLIGRAM
     Dates: start: 20240625, end: 20241108
  10. POLARAMINE [Concomitant]
     Active Substance: DEXCHLORPHENIRAMINE MALEATE
     Indication: Urticaria
     Dosage: 5 MILLIGRAM, PRN
     Dates: start: 20240706, end: 20240706
  11. BILASTINE [Concomitant]
     Active Substance: BILASTINE
     Indication: Urticaria
     Dosage: 20 MILLIGRAM, QD
     Dates: start: 20240706, end: 20240711
  12. EURAX [Concomitant]
     Active Substance: CROTAMITON
     Indication: Urticaria
     Dosage: 1 GRAM, BID
     Dates: start: 20240706, end: 20240810
  13. SALINE [Concomitant]
     Active Substance: SODIUM CHLORIDE
     Indication: Urticaria
     Dosage: 100 MILLILITER, PRN
     Dates: start: 20240706, end: 20240706
  14. VEEN D [Concomitant]
     Active Substance: CALCIUM CHLORIDE\DEXTROSE\POTASSIUM CHLORIDE\SODIUM ACETATE\SODIUM CHLORIDE
     Indication: Urticaria
     Dosage: 500 MILLILITER, PRN
     Dates: start: 20240711, end: 20240711

REACTIONS (8)
  - Anaphylactic reaction [Recovered/Resolved]
  - Dyspepsia [Recovered/Resolved]
  - Abdominal pain [Recovered/Resolved]
  - Oropharyngeal discomfort [Recovered/Resolved]
  - Urticaria [Recovered/Resolved]
  - Nausea [Recovered/Resolved]
  - Oropharyngeal pain [Recovered/Resolved]
  - Injection site swelling [Recovered/Resolved]

NARRATIVE: CASE EVENT DATE: 20240710
